FAERS Safety Report 18927432 (Version 1)
Quarter: 2021Q1

REPORT INFORMATION
  Report Type: Spontaneous
  Country: US (occurrence: US)
  Receive Date: 20210223
  Receipt Date: 20210223
  Transmission Date: 20210420
  Serious: No
  Sender: FDA-Public Use
  Company Number: US-FERRINGPH-2020FE00725

PATIENT
  Sex: Female

DRUGS (1)
  1. DESMOPRESSIN [Suspect]
     Active Substance: DESMOPRESSIN
     Indication: DIABETES INSIPIDUS
     Route: 065

REACTIONS (8)
  - Asthenia [Recovered/Resolved]
  - Product physical issue [Recovered/Resolved]
  - Discomfort [Recovered/Resolved]
  - Pollakiuria [Recovered/Resolved]
  - Feeling cold [Recovered/Resolved]
  - Fatigue [Recovered/Resolved]
  - Back pain [Recovered/Resolved]
  - Renal disorder [Recovered/Resolved]
